FAERS Safety Report 25027882 (Version 1)
Quarter: 2025Q1

REPORT INFORMATION
  Report Type: Spontaneous
  Country: US (occurrence: US)
  Receive Date: 20250301
  Receipt Date: 20250301
  Transmission Date: 20250409
  Serious: No
  Sender: SANOFI AVENTIS
  Company Number: US-SA-2025SA060785

PATIENT
  Sex: Female

DRUGS (12)
  1. KEVZARA [Suspect]
     Active Substance: SARILUMAB
     Indication: Rheumatoid arthritis
  2. VITAMINS NOS [Concomitant]
     Active Substance: VITAMINS
  3. METHOTREXATE [Concomitant]
     Active Substance: METHOTREXATE
  4. MELATONIN [Concomitant]
     Active Substance: MELATONIN
  5. IBANDRONATE SODIUM [Concomitant]
     Active Substance: IBANDRONATE SODIUM
  6. GABAPENTIN [Concomitant]
     Active Substance: GABAPENTIN
  7. FOLIC ACID [Concomitant]
     Active Substance: FOLIC ACID
  8. FLUTICASONE [Concomitant]
     Active Substance: FLUTICASONE
  9. CALCIUM [Concomitant]
     Active Substance: CALCIUM
  10. AZELASTINE HYDROCHLORIDE [Concomitant]
     Active Substance: AZELASTINE HYDROCHLORIDE
  11. ZOLPIDEM TARTRATE [Concomitant]
     Active Substance: ZOLPIDEM TARTRATE
  12. OMEPRAZOLE [Concomitant]
     Active Substance: OMEPRAZOLE

REACTIONS (5)
  - Hypersensitivity [Recovered/Resolved]
  - Sciatica [Recovered/Resolved]
  - Peripheral swelling [Recovered/Resolved]
  - Cyst [Recovered/Resolved]
  - Exostosis [Recovered/Resolved]
